FAERS Safety Report 10155638 (Version 1)
Quarter: 2014Q2

REPORT INFORMATION
  Report Type: Spontaneous
  Country: GB (occurrence: GB)
  Receive Date: 20140506
  Receipt Date: 20140506
  Transmission Date: 20141212
  Serious: Yes (Hospitalization, Other)
  Sender: FDA-Public Use
  Company Number: GB-VERTEX PHARMACEUTICALS INC-2014-002219

PATIENT
  Sex: 0

DRUGS (1)
  1. INCIVO [Suspect]
     Indication: ACUTE HEPATITIS C
     Route: 048

REACTIONS (7)
  - Adverse drug reaction [Unknown]
  - Rash [Unknown]
  - Drug reaction with eosinophilia and systemic symptoms [Unknown]
  - Dizziness [Unknown]
  - Off label use [Unknown]
  - Blood creatinine increased [Recovered/Resolved]
  - Anal pruritus [Unknown]
